FAERS Safety Report 22280458 (Version 1)
Quarter: 2023Q2

REPORT INFORMATION
  Report Type: Spontaneous
  Country: US (occurrence: None)
  Receive Date: 20230501
  Receipt Date: 20230501
  Transmission Date: 20230722
  Serious: No
  Sender: FDA-Public Use
  Company Number: None

PATIENT
  Sex: Female

DRUGS (1)
  1. FYREMADEL [Suspect]
     Active Substance: GANIRELIX ACETATE
     Dosage: OTHER STRENGTH : 20MCG/0.5ML;?
     Route: 058

REACTIONS (2)
  - Recalled product administered [None]
  - Hot flush [None]
